FAERS Safety Report 7053803-1 (Version None)
Quarter: 2010Q4

REPORT INFORMATION
  Report Type: 
  Country: None (occurrence: None)
  Receive Date: 20101020
  Receipt Date: 20101015
  Transmission Date: 20110411
  Serious: Yes (Hospitalization)
  Sender: FDA-Public Use
  Company Number: US-GILEAD-2010-0032170

PATIENT
  Age: 59 Year
  Sex: Male
  Weight: 88.53 kg

DRUGS (15)
  1. LETAIRIS [Suspect]
     Indication: PULMONARY ARTERIAL HYPERTENSION
     Route: 048
     Dates: start: 20091218
  2. REVATIO [Concomitant]
  3. WARFARIN [Concomitant]
  4. SPIRONOLACTONE [Concomitant]
  5. FUROSEMIDE [Concomitant]
  6. DIGOXIN [Concomitant]
  7. LIPITOR [Concomitant]
  8. GEMFIBROZIL [Concomitant]
  9. ADVAIR DISKUS 100/50 [Concomitant]
  10. METFORMIN HCL [Concomitant]
  11. ALPRAZOLAM [Concomitant]
  12. CHANTIX [Concomitant]
  13. MELOXICAM [Concomitant]
  14. ENBREL [Concomitant]
  15. ZOLPIDEM TARTRATE [Concomitant]

REACTIONS (1)
  - LUNG TRANSPLANT [None]
